FAERS Safety Report 5290075-2 (Version None)
Quarter: 2007Q1

REPORT INFORMATION
  Report Type: 
  Country: None (occurrence: None)
  Receive Date: 20070330
  Receipt Date: 20070322
  Transmission Date: 20070707
  Serious: Yes (Other)
  Sender: FDA-Public Use
  Company Number: 2007BL000926

PATIENT
  Age: 33 Year
  Sex: Female
  Weight: 145 kg

DRUGS (3)
  1. PREDNISOLONE SODIUM PHOSPHATE [Suspect]
     Indication: BRONCHITIS
     Dosage: 5 MILLIGRAMS; 5X DAILY; ORAL
     Route: 048
     Dates: start: 20070224, end: 20070224
  2. PREDNISOLONE SODIUM PHOSPHATE [Suspect]
     Indication: WHEEZING
     Dosage: 5 MILLIGRAMS; 5X DAILY; ORAL
     Route: 048
     Dates: start: 20070224, end: 20070224
  3. AMOXICILLIN [Concomitant]

REACTIONS (6)
  - CHEST DISCOMFORT [None]
  - DYSPNOEA [None]
  - FLUSHING [None]
  - HYPERSENSITIVITY [None]
  - OEDEMA MOUTH [None]
  - REACTION TO DRUG EXCIPIENTS [None]
